FAERS Safety Report 19224399 (Version 1)
Quarter: 2021Q2

REPORT INFORMATION
  Report Type: Spontaneous
  Country: US (occurrence: US)
  Receive Date: 20210506
  Receipt Date: 20210506
  Transmission Date: 20210717
  Serious: Yes (Death, Other)
  Sender: FDA-Public Use
  Company Number: US-ASTELLAS-2021US016555

PATIENT
  Age: 26 Year
  Sex: Female

DRUGS (1)
  1. AMBISOME [Suspect]
     Active Substance: AMPHOTERICIN B
     Indication: COCCIDIOIDOMYCOSIS
     Dosage: UNK UNK, UNKNOWN FREQ.
     Route: 065

REACTIONS (7)
  - Renal failure [Unknown]
  - Drug ineffective [Fatal]
  - Condition aggravated [Unknown]
  - Septic shock [Unknown]
  - Lactic acidosis [Unknown]
  - Hepatic failure [Unknown]
  - Hypoxia [Unknown]
